FAERS Safety Report 5922076-2 (Version None)
Quarter: 2008Q4

REPORT INFORMATION
  Report Type: 
  Country: None (occurrence: None)
  Receive Date: 20081017
  Receipt Date: 20081010
  Transmission Date: 20090506
  Serious: Yes (Other)
  Sender: FDA-Public Use
  Company Number: B0541038A

PATIENT
  Age: 28 Year
  Sex: Male

DRUGS (2)
  1. KIVEXA [Suspect]
  2. SUSTIVA [Suspect]

REACTIONS (9)
  - DEPRESSED MOOD [None]
  - DIARRHOEA [None]
  - DIZZINESS [None]
  - DRUG INTERACTION [None]
  - DRUG LEVEL INCREASED [None]
  - EPILEPSY [None]
  - FATIGUE [None]
  - INSOMNIA [None]
  - MALAISE [None]
